FAERS Safety Report 4465067-3 (Version None)
Quarter: 2004Q3

REPORT INFORMATION
  Report Type: 
  Country: None (occurrence: None)
  Receive Date: 20040928
  Receipt Date: 20040928
  Transmission Date: 20050211
  Serious: Yes (Hospitalization)
  Sender: FDA-Public Use
  Company Number: None

PATIENT
  Age: 70 Year
  Sex: Male
  Weight: 75.7507 kg

DRUGS (9)
  1. TAXOL [Suspect]
     Indication: LUNG NEOPLASM MALIGNANT
     Dosage: 270 IV Q 3WEEKS X 3
     Route: 042
     Dates: start: 20040722
  2. TAXOL [Suspect]
     Indication: LUNG NEOPLASM MALIGNANT
     Dosage: 270 IV Q 3WEEKS X 3
     Route: 042
     Dates: start: 20040811
  3. TAXOL [Suspect]
     Indication: LUNG NEOPLASM MALIGNANT
     Dosage: 270 IV Q 3WEEKS X 3
     Route: 042
     Dates: start: 20040901
  4. GEMZAR [Suspect]
     Indication: LUNG NEOPLASM MALIGNANT
     Dosage: 600 MG IV Q 3 WEEKS X 3
     Route: 042
     Dates: start: 20040722
  5. GEMZAR [Suspect]
     Indication: LUNG NEOPLASM MALIGNANT
     Dosage: 600 MG IV Q 3 WEEKS X 3
     Route: 042
     Dates: start: 20040811
  6. GEMZAR [Suspect]
     Indication: LUNG NEOPLASM MALIGNANT
     Dosage: 600 MG IV Q 3 WEEKS X 3
     Route: 042
     Dates: start: 20040901
  7. SEROQUEL [Concomitant]
  8. ATENOLOL [Concomitant]
  9. ZANTAC [Concomitant]

REACTIONS (5)
  - ANAEMIA [None]
  - CHILLS [None]
  - DEHYDRATION [None]
  - HEADACHE [None]
  - RADIATION PNEUMONITIS [None]
